FAERS Safety Report 17890257 (Version 3)
Quarter: 2020Q4

REPORT INFORMATION
  Report Type: Spontaneous
  Country: US (occurrence: US)
  Receive Date: 20200612
  Receipt Date: 20201210
  Transmission Date: 20210113
  Serious: Yes (Other)
  Sender: FDA-Public Use
  Company Number: US-PFIZER INC-2020226198

PATIENT
  Age: 24 Year
  Sex: Male

DRUGS (7)
  1. OXYGEN. [Concomitant]
     Active Substance: OXYGEN
     Indication: HYPERVENTILATION
     Dosage: UNK (20 L/MIN FOR 60 SECONDS)
  2. TESTOSTERONE CIPIONATE [Suspect]
     Active Substance: TESTOSTERONE
     Indication: GENDER REASSIGNMENT THERAPY
     Dosage: UNK, WEEKLY
  3. SUCCINYLCHOLINE [SUXAMETHONIUM] [Concomitant]
     Active Substance: SUCCINYLCHOLINE
     Indication: GENERAL ANAESTHESIA
     Dosage: 100 MG (1.2 MG/KG)
  4. SUCCINYLCHOLINE [SUXAMETHONIUM] [Concomitant]
     Active Substance: SUCCINYLCHOLINE
     Dosage: 100 MG
  5. METHOHEXITAL [Concomitant]
     Active Substance: METHOHEXITAL
     Dosage: 40 MG
  6. REMIFENTANIL [Interacting]
     Active Substance: REMIFENTANIL
     Indication: GENERAL ANAESTHESIA
     Dosage: 200 UG (ADMINISTERED 30 TO 45 SECONDS BEFORE METHOHEXITAL)
  7. METHOHEXITAL [Concomitant]
     Active Substance: METHOHEXITAL
     Indication: GENERAL ANAESTHESIA
     Dosage: 120 MG (1.5 MG/KG)

REACTIONS (3)
  - Cardiac arrest [Recovered/Resolved]
  - Bradycardia [Recovered/Resolved]
  - Drug interaction [Recovered/Resolved]
